FAERS Safety Report 10870394 (Version 1)
Quarter: 2015Q1

REPORT INFORMATION
  Report Type: Spontaneous
  Country: US (occurrence: None)
  Receive Date: 20150219
  Receipt Date: 20150219
  Transmission Date: 20150721
  Serious: Yes (Other)
  Sender: FDA-Public Use
  Company Number: 1823985-2015-00001

PATIENT
  Age: 53 Year
  Sex: Female
  Weight: 58.97 kg

DRUGS (1)
  1. EQUATE EFFERVESCENT COLD RELIEF TABLETS [Suspect]
     Active Substance: ACETAMINOPHEN OR ASPIRIN\CHLORPHENIRAMINE MALEATE\PHENYLEPHRINE HYDROCHLORIDE
     Indication: SINUS CONGESTION
     Dosage: TAB / 24 HRS / ORALLY
     Route: 048
     Dates: start: 20141215

REACTIONS (2)
  - Neuralgia [None]
  - Burning sensation [None]

NARRATIVE: CASE EVENT DATE: 20141215
